FAERS Safety Report 8505754-0 (Version None)
Quarter: 2012Q3

REPORT INFORMATION
  Report Type: 
  Country: None (occurrence: None)
  Receive Date: 20120712
  Receipt Date: 20120704
  Transmission Date: 20120928
  Serious: Yes (Other)
  Sender: FDA-Public Use
  Company Number: JP-BAYER-2011-116417

PATIENT
  Age: 76 Year
  Sex: Male
  Weight: 48.98 kg

DRUGS (3)
  1. NEXAVAR [Suspect]
     Indication: HEPATIC NEOPLASM MALIGNANT
     Dosage: 400 MG, QD
     Route: 048
     Dates: start: 20110831
  2. MAGMITT [Concomitant]
     Indication: CONSTIPATION
     Dosage: DAILY DOSE 400 MG
     Route: 048
     Dates: start: 20070914
  3. ALLOPURINOL [Concomitant]
     Indication: HYPERURICAEMIA
     Dosage: DAILY DOSE 100 MG
     Route: 048
     Dates: start: 20001020

REACTIONS (4)
  - BLOOD PRESSURE INCREASED [None]
  - ALTERED STATE OF CONSCIOUSNESS [None]
  - CEREBRAL INFARCTION [None]
  - LOSS OF CONSCIOUSNESS [None]
